FAERS Safety Report 10803455 (Version 1)
Quarter: 2015Q1

REPORT INFORMATION
  Report Type: Spontaneous
  Country: JP (occurrence: JP)
  Receive Date: 20150217
  Receipt Date: 20150217
  Transmission Date: 20150721
  Serious: Yes (Hospitalization, Other)
  Sender: FDA-Public Use
  Company Number: JP-APOTEX-2015AP006600

PATIENT
  Age: 61 Year
  Sex: Female

DRUGS (2)
  1. PAXIL [Suspect]
     Active Substance: PAROXETINE HYDROCHLORIDE
     Indication: PRODUCT USED FOR UNKNOWN INDICATION
  2. FLUVASTATIN [Suspect]
     Active Substance: FLUVASTATIN SODIUM
     Indication: PRODUCT USED FOR UNKNOWN INDICATION

REACTIONS (9)
  - Muscular weakness [Recovered/Resolved]
  - Pseudoaldosteronism [Recovered/Resolved]
  - Blood aldosterone decreased [Recovered/Resolved]
  - Blood creatine phosphokinase increased [Recovering/Resolving]
  - Hypoaesthesia [Recovered/Resolved]
  - Dysstasia [Unknown]
  - Renin decreased [Recovered/Resolved]
  - Hypokalaemia [Recovering/Resolving]
  - Rhabdomyolysis [Recovered/Resolved]
